FAERS Safety Report 6480899-8 (Version None)
Quarter: 2009Q4

REPORT INFORMATION
  Report Type: 
  Country: None (occurrence: None)
  Receive Date: 20091208
  Receipt Date: 20091127
  Transmission Date: 20100525
  Serious: Yes (Other)
  Sender: FDA-Public Use
  Company Number: PHHY2009JP51654

PATIENT
  Age: 55 Year
  Sex: Male

DRUGS (1)
  1. GLEEVEC [Suspect]
     Indication: GASTROINTESTINAL STROMAL TUMOUR
     Dosage: UNK

REACTIONS (4)
  - DRUG INEFFECTIVE [None]
  - MALIGNANT TUMOUR EXCISION [None]
  - SMALL INTESTINAL RESECTION [None]
  - THERAPEUTIC RESPONSE DECREASED [None]
